FAERS Safety Report 8979245 (Version 1)
Quarter: 2012Q4

REPORT INFORMATION
  Report Type: 
  Country: DE (occurrence: DE)
  Receive Date: 20121221
  Receipt Date: 20121221
  Transmission Date: 20130627
  Serious: Yes (Other)
  Sender: FDA-Public Use
  Company Number: DE-PFIZER INC-2012322807

PATIENT
  Age: 55 Year
  Sex: Female

DRUGS (1)
  1. CLINDAMYCIN PHOSPHATE [Suspect]
     Indication: WOUND INFECTION
     Dosage: 600 mg, 3x/day
     Route: 048

REACTIONS (2)
  - Varicella [Recovered/Resolved]
  - Eczema [Unknown]
